FAERS Safety Report 7535786-0 (Version None)
Quarter: 2011Q2

REPORT INFORMATION
  Report Type: 
  Country: None (occurrence: None)
  Receive Date: 20110608
  Receipt Date: 20110608
  Transmission Date: 20111010
  Serious: Yes (Life-Threatening, Disabling)
  Sender: FDA-Public Use
  Company Number: None

PATIENT
  Age: 49 Year
  Sex: Male
  Weight: 87.0906 kg

DRUGS (2)
  1. CLONAZEPAM [Suspect]
     Indication: BIPOLAR I DISORDER
     Dosage: 5MG PER DAY
     Dates: start: 20100301, end: 20100801
  2. CLONAZEPAM [Suspect]
     Indication: SCHIZOPHRENIA
     Dosage: 5MG PER DAY
     Dates: start: 20100301, end: 20100801

REACTIONS (8)
  - RENAL PAIN [None]
  - HEADACHE [None]
  - PAIN IN EXTREMITY [None]
  - SUICIDAL IDEATION [None]
  - LUNG DISORDER [None]
  - PAIN [None]
  - ANGINA PECTORIS [None]
  - WITHDRAWAL SYNDROME [None]
